FAERS Safety Report 7515487-5 (Version None)
Quarter: 2011Q2

REPORT INFORMATION
  Report Type: 
  Country: None (occurrence: None)
  Receive Date: 20110601
  Receipt Date: 20100709
  Transmission Date: 20111010
  Serious: Yes (Other)
  Sender: FDA-Public Use
  Company Number: US-PFIZER INC-2010072221

PATIENT
  Age: 40 Year
  Sex: Male
  Weight: 81.633 kg

DRUGS (1)
  1. CHANTIX [Suspect]
     Indication: SMOKING CESSATION THERAPY
     Dosage: 1 MG, 2X/DAY
     Route: 048
     Dates: start: 20091103, end: 20091120

REACTIONS (4)
  - SUICIDAL IDEATION [None]
  - AGGRESSION [None]
  - PSYCHOTIC DISORDER [None]
  - DEPRESSION [None]
